FAERS Safety Report 8044120-1 (Version None)
Quarter: 2012Q1

REPORT INFORMATION
  Report Type: 
  Country: None (occurrence: None)
  Receive Date: 20120113
  Receipt Date: 20101223
  Transmission Date: 20120608
  Serious: Yes (Other)
  Sender: FDA-Public Use
  Company Number: IT-UCBSA-024731

PATIENT

DRUGS (8)
  1. LEVETIRACETAM [Suspect]
  2. CARBIDOPA [Concomitant]
     Indication: PARKINSON'S DISEASE
  3. LEVETIRACETAM [Suspect]
     Indication: DYSKINESIA
  4. LEVETIRACETAM [Suspect]
  5. BENSERAZIDE [Concomitant]
     Indication: PARKINSON'S DISEASE
  6. PRAMIPEXOLE DIHYCHLLORIDE [Concomitant]
     Indication: PARKINSON'S DISEASE
  7. LEVODOPA [Concomitant]
     Indication: PARKINSON'S DISEASE
     Dosage: DOSE RANGING FROM 350 TO 800 MG/DAY
  8. ENTACAPONE [Concomitant]
     Indication: PARKINSON'S DISEASE

REACTIONS (3)
  - PARKINSON'S DISEASE [None]
  - IRRITABILITY [None]
  - ANXIETY [None]
